FAERS Safety Report 4345320-4 (Version None)
Quarter: 2004Q2

REPORT INFORMATION
  Report Type: 
  Country: None (occurrence: None)
  Receive Date: 20040420
  Receipt Date: 20040406
  Transmission Date: 20050107
  Serious: Yes (Hospitalization)
  Sender: FDA-Public Use
  Company Number: CERZ-10549

PATIENT
  Sex: Female
  Weight: 75 kg

DRUGS (2)
  1. CEREZYME [Suspect]
     Indication: GAUCHER'S DISEASE
     Dosage: 3600 UNITS Q2WKS IV
     Route: 042
     Dates: start: 20000906, end: 20040406
  2. CEREZYME [Suspect]
     Indication: GAUCHER'S DISEASE
     Dosage: 3600 UNITS Q2WKS  IV
     Route: 042
     Dates: start: 20040426

REACTIONS (2)
  - ASEPTIC NECROSIS BONE [None]
  - BONE MARROW DISORDER [None]
